FAERS Safety Report 5897946-4 (Version None)
Quarter: 2008Q3

REPORT INFORMATION
  Report Type: 
  Country: None (occurrence: None)
  Receive Date: 20080925
  Receipt Date: 20080922
  Transmission Date: 20090109
  Serious: Yes (Other)
  Sender: FDA-Public Use
  Company Number: A0748573A

PATIENT
  Age: 76 Year
  Sex: Female

DRUGS (5)
  1. ADVAIR DISKUS 100/50 [Suspect]
     Indication: ASTHMA
     Dosage: 1PUFF TWICE PER DAY
     Route: 055
     Dates: start: 20060101
  2. VICODIN [Concomitant]
  3. PULMICORT-100 [Concomitant]
  4. ALBUTEROL [Concomitant]
  5. ATIVAN [Concomitant]

REACTIONS (5)
  - ANXIETY [None]
  - FALL [None]
  - NERVOUSNESS [None]
  - PALPITATIONS [None]
  - WRIST FRACTURE [None]
